FAERS Safety Report 23508279 (Version 1)
Quarter: 2024Q1

REPORT INFORMATION
  Report Type: Spontaneous
  Country: US (occurrence: US)
  Receive Date: 20240209
  Receipt Date: 20240209
  Transmission Date: 20240409
  Serious: No
  Sender: FDA-Public Use
  Company Number: US-IBSA PHARMA INC.-2023IBS000082

PATIENT

DRUGS (2)
  1. TIROSINT-SOL [Suspect]
     Active Substance: LEVOTHYROXINE SODIUM
     Indication: Autoimmune thyroid disorder
     Dosage: 25 MICROGRAM, QD
     Route: 048
  2. TIROSINT-SOL [Suspect]
     Active Substance: LEVOTHYROXINE SODIUM
     Dosage: 50 MICROGRAM, QD
     Route: 048

REACTIONS (6)
  - Thyroid disorder [Unknown]
  - Feeling cold [Unknown]
  - Chills [Unknown]
  - Dry skin [Unknown]
  - Fatigue [Unknown]
  - Product quality issue [Unknown]
